FAERS Safety Report 20120094 (Version 1)
Quarter: 2021Q4

REPORT INFORMATION
  Report Type: Spontaneous
  Country: US (occurrence: None)
  Receive Date: 20211126
  Receipt Date: 20211126
  Transmission Date: 20220303
  Serious: Yes (Hospitalization)
  Sender: FDA-Public Use
  Company Number: US-ROCHE-2960933

PATIENT
  Sex: Male
  Weight: 9.988 kg

DRUGS (5)
  1. PULMOZYME [Suspect]
     Active Substance: DORNASE ALFA
     Indication: Tracheitis
     Dosage: 1 MG/ML?2.5 ML BOX 3?INHALE 2.5 MG VIA NEBULIZER
     Route: 055
     Dates: start: 20210609
  2. FLOVENT [Concomitant]
     Active Substance: FLUTICASONE PROPIONATE
     Route: 055
     Dates: start: 20200423, end: 20200607
  3. PREVACID [Concomitant]
     Active Substance: LANSOPRAZOLE
     Route: 048
     Dates: start: 20200423
  4. AMLODIPINE [Concomitant]
     Active Substance: AMLODIPINE BESYLATE
     Route: 048
     Dates: start: 20200423
  5. CLINDAMYCIN [Concomitant]
     Active Substance: CLINDAMYCIN
     Route: 048
     Dates: start: 20200812, end: 20210607

REACTIONS (2)
  - Rhinovirus infection [Unknown]
  - Off label use [Unknown]
